FAERS Safety Report 15716893 (Version 2)
Quarter: 2018Q4

REPORT INFORMATION
  Report Type: Spontaneous
  Country: CA (occurrence: CA)
  Receive Date: 20181213
  Receipt Date: 20181225
  Transmission Date: 20190205
  Serious: Yes (Hospitalization)
  Sender: FDA-Public Use
  Company Number: CA-CELLTRION INC.-2018CA024567

PATIENT

DRUGS (2)
  1. INFLECTRA [Suspect]
     Active Substance: INFLIXIMAB-DYYB
     Indication: COLITIS ULCERATIVE
     Dosage: 400 MG
     Route: 042
     Dates: start: 2018, end: 2018
  2. INFLECTRA [Suspect]
     Active Substance: INFLIXIMAB-DYYB
     Dosage: 10 MG/KG, 800 MG
     Route: 042
     Dates: start: 20181130

REACTIONS (6)
  - Drug ineffective [Unknown]
  - Product use issue [Unknown]
  - Blood albumin decreased [Unknown]
  - Haemoglobin decreased [Recovering/Resolving]
  - Diverticulum [Unknown]
  - C-reactive protein increased [Not Recovered/Not Resolved]
